FAERS Safety Report 4311970-4 (Version None)
Quarter: 2004Q1

REPORT INFORMATION
  Report Type: 
  Country: None (occurrence: None)
  Receive Date: 20040303
  Receipt Date: 20040224
  Transmission Date: 20041129
  Serious: No
  Sender: FDA-Public Use
  Company Number: 2003GB00198

PATIENT
  Age: 25 Year
  Sex: Female

DRUGS (3)
  1. SEROQUEL [Suspect]
     Indication: PANIC ATTACK
     Dosage: 225 MG HS PO
     Route: 048
     Dates: start: 19980101
  2. SEROQUEL [Suspect]
     Indication: SCHIZOPHRENIA
     Dosage: 225 MG HS PO
     Route: 048
     Dates: start: 19980101
  3. COMBIVENT [Suspect]
     Dosage: 2 PUFF QID IH
     Route: 055

REACTIONS (3)
  - ABORTION SPONTANEOUS [None]
  - COMPLICATIONS OF MATERNAL EXPOSURE TO THERAPEUTIC DRUGS [None]
  - DRUG EXPOSURE DURING PREGNANCY [None]
